FAERS Safety Report 8770074 (Version 2)
Quarter: 2012Q4

REPORT INFORMATION
  Report Type: 
  Country: US (occurrence: US)
  Receive Date: 20120905
  Receipt Date: 20120910
  Transmission Date: 20130627
  Serious: Yes (Other)
  Sender: FDA-Public Use
  Company Number: US-PFIZER INC-HQWYE224431AUG05

PATIENT
  Age: 56 Year
  Sex: Female
  Weight: 77.1 kg

DRUGS (4)
  1. PREMPRO [Suspect]
     Indication: HORMONE REPLACEMENT THERAPY
     Dosage: 0.625/2.5 mg
     Route: 048
     Dates: start: 19990611, end: 20020709
  2. PREMARIN [Suspect]
     Indication: HORMONE REPLACEMENT THERAPY
     Dosage: UNK
     Route: 048
  3. TYLENOL W/CODEINE NO. 3 [Concomitant]
     Indication: PAIN
     Dosage: one tablet every four hours as needed
     Dates: start: 20030321, end: 20030920
  4. CEPHALEXIN [Concomitant]
     Dosage: 250 mg, 4x/day
     Dates: start: 20030304, end: 20040303

REACTIONS (2)
  - Breast cancer [Unknown]
  - Emotional distress [Unknown]
